FAERS Safety Report 12325278 (Version 1)
Quarter: 2016Q2

REPORT INFORMATION
  Report Type: Spontaneous
  Country: CN (occurrence: CN)
  Receive Date: 20160502
  Receipt Date: 20160502
  Transmission Date: 20160815
  Serious: Yes (Other)
  Sender: FDA-Public Use
  Company Number: CN-TAKEDA-2016MPI003543

PATIENT
  Age: 65 Year
  Sex: Male

DRUGS (7)
  1. METFORMIN [Concomitant]
     Active Substance: METFORMIN HYDROCHLORIDE
     Indication: TYPE 2 DIABETES MELLITUS
     Dosage: UNK
     Route: 048
  2. VELCADE [Suspect]
     Active Substance: BORTEZOMIB
     Dosage: 1.6 MG/M2, UNK
     Route: 065
     Dates: start: 20100121, end: 20100126
  3. VELCADE [Suspect]
     Active Substance: BORTEZOMIB
     Dosage: 1.3 MG/M2, UNK
     Route: 065
     Dates: start: 20091226
  4. VELCADE [Suspect]
     Active Substance: BORTEZOMIB
     Indication: MANTLE CELL LYMPHOMA REFRACTORY
     Dosage: 1.6 MG/M2, UNK
     Route: 065
     Dates: end: 20100105
  5. VELCADE [Suspect]
     Active Substance: BORTEZOMIB
     Dosage: 1.5 MG/M2, UNK
     Route: 065
  6. DEXAMETHASONE. [Suspect]
     Active Substance: DEXAMETHASONE
     Indication: MANTLE CELL LYMPHOMA REFRACTORY
     Dosage: 15 MG, UNK
     Route: 065
     Dates: start: 20100121, end: 20100126
  7. DEXAMETHASONE. [Suspect]
     Active Substance: DEXAMETHASONE
     Dosage: 15 MG, UNK
     Route: 065
     Dates: start: 20091226, end: 20100105

REACTIONS (10)
  - Oropharyngeal pain [Recovering/Resolving]
  - Neuropathy peripheral [Recovering/Resolving]
  - Pyrexia [Recovering/Resolving]
  - Fatigue [Recovering/Resolving]
  - Chest discomfort [Recovering/Resolving]
  - Platelet count decreased [Recovered/Resolved]
  - Mental impairment [Recovering/Resolving]
  - Dyspnoea exertional [Recovering/Resolving]
  - Diarrhoea [Recovered/Resolved]
  - Cough [Recovering/Resolving]

NARRATIVE: CASE EVENT DATE: 2010
